FAERS Safety Report 9110726 (Version 1)
Quarter: 2013Q1

REPORT INFORMATION
  Report Type: Spontaneous
  Country: US (occurrence: US)
  Receive Date: 20130219
  Receipt Date: 20130219
  Transmission Date: 20140127
  Serious: No
  Sender: FDA-Public Use
  Company Number: US-BRISTOL-MYERS SQUIBB COMPANY-16941957

PATIENT
  Age: 39 Year
  Sex: Female
  Weight: 74 kg

DRUGS (10)
  1. ABATACEPT SUBQ INJECTION 125MG/ML [Suspect]
     Indication: RHEUMATOID ARTHRITIS
     Route: 058
     Dates: start: 20120806
  2. METHOTREXATE [Suspect]
  3. PREDNISONE [Suspect]
  4. AMBIEN [Concomitant]
  5. ATENOLOL [Concomitant]
  6. FOLIC ACID [Concomitant]
  7. LEVOTHYROXIN [Concomitant]
  8. WELLBUTRIN [Concomitant]
  9. ZANTAC [Concomitant]
  10. DROSPIRENONE + ETHINYLESTRADIOL [Concomitant]

REACTIONS (1)
  - Wound infection [Not Recovered/Not Resolved]
